FAERS Safety Report 5072902-7 (Version None)
Quarter: 2006Q3

REPORT INFORMATION
  Report Type: 
  Country: None (occurrence: None)
  Receive Date: 20060802
  Receipt Date: 20060720
  Transmission Date: 20061208
  Serious: Yes (Hospitalization)
  Sender: FDA-Public Use
  Company Number: HQWYE646505APR06

PATIENT
  Age: 74 Year
  Sex: Female

DRUGS (6)
  1. PANTOLOC [Suspect]
     Dosage: 200 MG (OVERDOSE AMOUNT) ORAL
     Route: 048
     Dates: start: 20050525, end: 20050525
  2. ATIVAN [Suspect]
     Indication: INTENTIONAL SELF-INJURY
     Dosage: 5 MG (OVERDOSE AMOUNT)
     Dates: start: 20050525, end: 20050525
  3. DIGOXIN [Suspect]
     Dosage: 1.25 MG (OVERDOSE AMOUNT)
     Dates: start: 20050525, end: 20050525
  4. EFFEXOR XR [Suspect]
     Dosage: 250 MG (OVERDOSE AMOUNT)
     Dates: start: 20050525, end: 20050525
  5. SEROQUEL [Suspect]
     Indication: INTENTIONAL SELF-INJURY
     Dosage: 250 MG (OVERDOSE AMOUNT)
     Dates: start: 20050525, end: 20050525
  6. VASOTEC [Suspect]
     Dosage: 50 MG (OVERDOSE AMOUNT)
     Dates: start: 20050525, end: 20050525

REACTIONS (3)
  - ATRIOVENTRICULAR BLOCK FIRST DEGREE [None]
  - COMA [None]
  - INTENTIONAL OVERDOSE [None]
